FAERS Safety Report 5669477-8 (Version None)
Quarter: 2008Q1

REPORT INFORMATION
  Report Type: 
  Country: None (occurrence: None)
  Receive Date: 20080312
  Receipt Date: 20080312
  Transmission Date: 20080703
  Serious: Yes (Hospitalization, Other)
  Sender: FDA-Public Use
  Company Number: None

PATIENT
  Sex: Male
  Weight: 31.8425 kg

DRUGS (1)
  1. TAMIFLU [Suspect]
     Indication: INFLUENZA
     Dosage: 1 TSP. 2X DAILY PO 2 DOSES
     Route: 048
     Dates: start: 20080219, end: 20080219

REACTIONS (9)
  - ABNORMAL BEHAVIOUR [None]
  - CATATONIA [None]
  - CRYING [None]
  - EYE MOVEMENT DISORDER [None]
  - ILL-DEFINED DISORDER [None]
  - MOVEMENT DISORDER [None]
  - RESPIRATORY ARREST [None]
  - SCREAMING [None]
  - THINKING ABNORMAL [None]
